FAERS Safety Report 24617615 (Version 1)
Quarter: 2024Q4

REPORT INFORMATION
  Report Type: Spontaneous
  Country: FR (occurrence: FR)
  Receive Date: 20241114
  Receipt Date: 20241114
  Transmission Date: 20250115
  Serious: Yes (Death, Other)
  Sender: RANBAXY
  Company Number: FR-AFSSAPS-AN2024001345

PATIENT
  Age: 71 Year
  Sex: Female

DRUGS (8)
  1. ATORVASTATIN [Suspect]
     Active Substance: ATORVASTATIN
     Indication: Prophylaxis
     Dosage: 20 MILLIGRAM, DAILY
     Route: 048
     Dates: end: 20240904
  2. BISOPROLOL [Suspect]
     Active Substance: BISOPROLOL\BISOPROLOL FUMARATE
     Indication: Prophylaxis
     Dosage: 2.5 MILLIGRAM, DAILY
     Route: 048
     Dates: end: 202409
  3. METFORMIN [Suspect]
     Active Substance: METFORMIN HYDROCHLORIDE
     Indication: Type 2 diabetes mellitus
     Dosage: 1 GRAM, DAILY
     Route: 048
     Dates: end: 20240904
  4. LANTUS [Suspect]
     Active Substance: INSULIN GLARGINE
     Indication: Type 2 diabetes mellitus
     Dosage: 30 INTERNATIONAL UNIT, DAILY
     Route: 058
     Dates: end: 202409
  5. HUMALOG [Suspect]
     Active Substance: INSULIN LISPRO
     Indication: Type 2 diabetes mellitus
     Dosage: 88 INTERNATIONAL UNIT, DAILY
     Route: 058
     Dates: end: 202409
  6. INLYTA [Suspect]
     Active Substance: AXITINIB
     Indication: Renal cancer
     Dosage: 10 MILLIGRAM, DAILY
     Route: 048
     Dates: start: 202407, end: 202408
  7. INLYTA [Suspect]
     Active Substance: AXITINIB
     Dosage: 6 MILLIGRAM, DAILY
     Route: 048
     Dates: start: 202408, end: 20240904
  8. INNOHEP [Suspect]
     Active Substance: TINZAPARIN SODIUM
     Indication: Pulmonary embolism
     Dosage: 1 DOSAGE FORM, DAILY
     Route: 058
     Dates: start: 202303

REACTIONS (2)
  - Coma [Fatal]
  - Hypoglycaemia [Recovered/Resolved]

NARRATIVE: CASE EVENT DATE: 20240801
